FAERS Safety Report 20102897 (Version 1)
Quarter: 2021Q4

REPORT INFORMATION
  Report Type: Spontaneous
  Country: IT (occurrence: IT)
  Receive Date: 20211123
  Receipt Date: 20211123
  Transmission Date: 20220303
  Serious: Yes (Other)
  Sender: FDA-Public Use
  Company Number: IT-NOVARTISPH-NVSC2021IT267498

PATIENT
  Age: 48 Year
  Sex: Male

DRUGS (1)
  1. ADALIMUMAB [Suspect]
     Active Substance: ADALIMUMAB
     Indication: Psoriasis
     Dosage: 40 MG, BIW (STARTING ONE WEEK AFTER THE INITIAL DOSE)
     Route: 065

REACTIONS (2)
  - Fluid retention [Unknown]
  - Face oedema [Unknown]
